FAERS Safety Report 19715632 (Version 2)
Quarter: 2021Q3

REPORT INFORMATION
  Report Type: Report from Study
  Country: AU (occurrence: AU)
  Receive Date: 20210818
  Receipt Date: 20210902
  Transmission Date: 20211014
  Serious: Yes (Other)
  Sender: FDA-Public Use
  Company Number: AU-ALNYLAM PHARMACEUTICALS, INC.-ALN-2021-002006

PATIENT

DRUGS (1)
  1. GIVLAARI [Suspect]
     Active Substance: GIVOSIRAN SODIUM
     Indication: PORPHYRIA ACUTE
     Dosage: 245 MILLIGRAM, EVERY 4 WEEKS
     Route: 058
     Dates: start: 20200514

REACTIONS (3)
  - Vitamin B6 decreased [Unknown]
  - Blood homocysteine increased [Unknown]
  - Deep vein thrombosis [Unknown]

NARRATIVE: CASE EVENT DATE: 20210809
